FAERS Safety Report 6922974-7 (Version None)
Quarter: 2010Q3

REPORT INFORMATION
  Report Type: 
  Country: None (occurrence: None)
  Receive Date: 20100813
  Receipt Date: 20100803
  Transmission Date: 20110219
  Serious: Yes (Hospitalization, Other)
  Sender: FDA-Public Use
  Company Number: GB-JNJFOC-20100803429

PATIENT
  Age: 62 Year
  Sex: Male
  Weight: 78 kg

DRUGS (8)
  1. REMICADE [Suspect]
     Indication: RHEUMATOID ARTHRITIS
     Route: 042
  2. REMICADE [Suspect]
     Route: 042
  3. METHOTREXATE [Concomitant]
  4. PREDNISOLONE [Concomitant]
  5. CELEBREX [Concomitant]
  6. FOSAMAX [Concomitant]
  7. OMEPRAZOLE [Concomitant]
  8. CD3F [Concomitant]

REACTIONS (3)
  - DYSPNOEA [None]
  - PLEURAL EFFUSION [None]
  - THORACIC CAVITY DRAINAGE [None]
